FAERS Safety Report 20445196 (Version 1)
Quarter: 2022Q1

REPORT INFORMATION
  Report Type: Spontaneous
  Country: US (occurrence: US)
  Receive Date: 20220208
  Receipt Date: 20220208
  Transmission Date: 20220423
  Serious: No
  Sender: FDA-Public Use
  Company Number: US-FERAPHARMA-2021-US-016873

PATIENT
  Age: 86 Year
  Sex: Female
  Weight: 60.33 kg

DRUGS (2)
  1. KEFLEX [Suspect]
     Active Substance: CEPHALEXIN
     Indication: Cystitis
     Dosage: 500 MG X 10 DAYS
     Route: 048
  2. XELJANZ [Concomitant]
     Active Substance: TOFACITINIB CITRATE
     Indication: Rheumatoid arthritis
     Dosage: 2 TABLETS TAKEN ONCE DAILY, THEN 1 TABLET TAKEN DAILY
     Route: 048
     Dates: start: 20130101

REACTIONS (1)
  - Drug ineffective [Unknown]
